FAERS Safety Report 7827800-X (Version None)
Quarter: 2011Q4

REPORT INFORMATION
  Report Type: 
  Country: None (occurrence: None)
  Receive Date: 20111019
  Receipt Date: 20111019
  Transmission Date: 20120403
  Serious: Yes (Life-Threatening)
  Sender: FDA-Public Use
  Company Number: None

PATIENT
  Age: 59 Year
  Sex: Female
  Weight: 54.4316 kg

DRUGS (2)
  1. NEURONTIN [Suspect]
     Indication: HEAD AND NECK CANCER
     Dates: start: 20110429, end: 20111008
  2. NEURONTIN [Suspect]
     Indication: NEURALGIA
     Dates: start: 20110429, end: 20111008

REACTIONS (2)
  - SOMNOLENCE [None]
  - PSYCHOTIC DISORDER [None]
